FAERS Safety Report 14084310 (Version 4)
Quarter: 2018Q1

REPORT INFORMATION
  Report Type: Report from Study
  Country: US (occurrence: US)
  Receive Date: 20171013
  Receipt Date: 20180102
  Transmission Date: 20180508
  Serious: Yes (Other)
  Sender: FDA-Public Use
  Company Number: PHHO2017US014145

PATIENT
  Age: 66 Year
  Sex: Male
  Weight: 96.5 kg

DRUGS (5)
  1. METFORMIN [Concomitant]
     Active Substance: METFORMIN HYDROCHLORIDE
     Indication: DIABETES MELLITUS
     Dosage: 1000 MG, QD
     Route: 065
     Dates: start: 2015
  2. GABAPENTIN. [Concomitant]
     Active Substance: GABAPENTIN
     Indication: CERVICAL RADICULOPATHY
     Dosage: 300 MG, TID
     Route: 065
     Dates: start: 20170713
  3. ABL001 [Suspect]
     Active Substance: INVESTIGATIONAL PRODUCT
     Indication: CHRONIC MYELOID LEUKAEMIA
     Dosage: 40 MG, QD
     Route: 048
     Dates: start: 20170223
  4. GLIMEPIRIDE. [Concomitant]
     Active Substance: GLIMEPIRIDE
     Indication: DIABETES MELLITUS
     Dosage: 4 MG, QD (EVENING)
     Route: 065
     Dates: start: 2015
  5. GLEEVEC [Suspect]
     Active Substance: IMATINIB MESYLATE
     Indication: CHRONIC MYELOID LEUKAEMIA
     Dosage: 400 MG, QD
     Route: 048
     Dates: start: 20170223

REACTIONS (1)
  - Chronic inflammatory demyelinating polyradiculoneuropathy [Recovering/Resolving]

NARRATIVE: CASE EVENT DATE: 20170907
